FAERS Safety Report 10063181 (Version 1)
Quarter: 2014Q2

REPORT INFORMATION
  Report Type: Spontaneous
  Country: GB (occurrence: GB)
  Receive Date: 20140407
  Receipt Date: 20140407
  Transmission Date: 20141212
  Serious: Yes (Other)
  Sender: FDA-Public Use
  Company Number: GB-BAXTER-2014BAX015869

PATIENT
  Age: 66 Year
  Sex: Female

DRUGS (5)
  1. SODIUM CHLORIDE_SODIUM CHLORIDE 0.90 %_SOLUTION FOR INFUSION_BAG, PVC [Suspect]
     Indication: MEDICATION DILUTION
     Route: 042
     Dates: start: 20140204, end: 20140204
  2. MABTHERA [Suspect]
     Indication: RHEUMATIC DISORDER
     Route: 042
     Dates: start: 20140204, end: 20140204
  3. CHLORPHENAMINE [Suspect]
     Indication: PREMEDICATION
     Route: 042
     Dates: start: 20140204, end: 20140204
  4. HYDROCORTISONE [Suspect]
     Indication: PREMEDICATION
     Route: 042
     Dates: start: 20140204, end: 20140204
  5. PARACETAMOL [Suspect]
     Indication: PREMEDICATION
     Route: 048
     Dates: start: 20140204, end: 20140204

REACTIONS (5)
  - Oral discomfort [Recovered/Resolved]
  - Malaise [Recovered/Resolved]
  - Throat irritation [Recovered/Resolved]
  - Paraesthesia [Recovered/Resolved]
  - Throat irritation [Recovered/Resolved]
